FAERS Safety Report 11861618 (Version 1)
Quarter: 2015Q4

REPORT INFORMATION
  Report Type: Spontaneous
  Country: US (occurrence: US)
  Receive Date: 20151222
  Receipt Date: 20151222
  Transmission Date: 20160305
  Serious: Yes (Hospitalization)
  Sender: FDA-Public Use
  Company Number: US-TEVA-619462USA

PATIENT
  Age: 17 Year
  Sex: Female

DRUGS (2)
  1. ALBUTEROL NEBULIZER [Concomitant]
     Active Substance: ALBUTEROL
     Indication: ASTHMA
  2. PROAIR HFA [Suspect]
     Active Substance: ALBUTEROL SULFATE
     Indication: ASTHMA
     Route: 055

REACTIONS (5)
  - Gastrointestinal erosion [Not Recovered/Not Resolved]
  - Intestinal villi atrophy [Not Recovered/Not Resolved]
  - Skin reaction [Not Recovered/Not Resolved]
  - Gastrointestinal inflammation [Not Recovered/Not Resolved]
  - Neurological symptom [Not Recovered/Not Resolved]

NARRATIVE: CASE EVENT DATE: 201506
